FAERS Safety Report 13088426 (Version 2)
Quarter: 2017Q1

REPORT INFORMATION
  Report Type: Report from Study
  Country: KR (occurrence: KR)
  Receive Date: 20170105
  Receipt Date: 20170117
  Transmission Date: 20170428
  Serious: Yes (Hospitalization)
  Sender: FDA-Public Use
  Company Number: KR-NOVOPROD-525167

PATIENT
  Age: 42 Year
  Sex: Female

DRUGS (2)
  1. TRESIBA [Suspect]
     Active Substance: INSULIN DEGLUDEC
     Dosage: 14 U
     Route: 058
     Dates: start: 201612
  2. TRESIBA [Suspect]
     Active Substance: INSULIN DEGLUDEC
     Indication: DIABETES MELLITUS
     Dosage: 54 U
     Route: 058
     Dates: start: 20161217, end: 201612

REACTIONS (2)
  - Vomiting [Unknown]
  - Dizziness [Unknown]
